FAERS Safety Report 16233848 (Version 1)
Quarter: 2019Q2

REPORT INFORMATION
  Report Type: Spontaneous
  Country: US (occurrence: US)
  Receive Date: 20190424
  Receipt Date: 20190424
  Transmission Date: 20190711
  Serious: No
  Sender: FDA-Public Use
  Company Number: US-TEVA-2019-US-1032742

PATIENT
  Sex: Female

DRUGS (1)
  1. ETHOSUXIMIDE ORAL SOLUTION [Suspect]
     Active Substance: ETHOSUXIMIDE
     Indication: SEIZURE
     Dosage: DOSE STRENGTH:  250 MG/5 ML
     Route: 065

REACTIONS (1)
  - Reaction to colouring [Unknown]
